FAERS Safety Report 5783916-3 (Version None)
Quarter: 2008Q2

REPORT INFORMATION
  Report Type: 
  Country: None (occurrence: None)
  Receive Date: 20080605
  Receipt Date: 20080326
  Transmission Date: 20081010
  Serious: No
  Sender: FDA-Public Use
  Company Number: A0717561A

PATIENT
  Age: 54 Year
  Sex: Male

DRUGS (3)
  1. ALLI [Suspect]
     Indication: ROUTINE HEALTH MAINTENANCE
     Dates: start: 20070723
  2. LIPITOR [Concomitant]
  3. ANTI-HYPERTENSIVE [Concomitant]

REACTIONS (3)
  - FLATULENCE [None]
  - RECTAL DISCHARGE [None]
  - THERAPEUTIC RESPONSE UNEXPECTED [None]
